FAERS Safety Report 5241689-7 (Version None)
Quarter: 2007Q1

REPORT INFORMATION
  Report Type: 
  Country: None (occurrence: None)
  Receive Date: 20070220
  Receipt Date: 20070206
  Transmission Date: 20070707
  Serious: Yes (Hospitalization, Other)
  Sender: FDA-Public Use
  Company Number: US-ELI_LILLY_AND_COMPANY-US200702000997

PATIENT
  Sex: Female

DRUGS (1)
  1. FORTEO [Suspect]
     Indication: OSTEOPOROSIS
     Dates: start: 20060701

REACTIONS (6)
  - ADVERSE DRUG REACTION [None]
  - APPENDICEAL ABSCESS [None]
  - CERVICAL DYSPLASIA [None]
  - MENORRHAGIA [None]
  - PAIN [None]
  - VOMITING [None]
